FAERS Safety Report 24303203 (Version 1)
Quarter: 2024Q3

REPORT INFORMATION
  Report Type: Spontaneous
  Country: JP (occurrence: JP)
  Receive Date: 20240910
  Receipt Date: 20240910
  Transmission Date: 20241017
  Serious: Yes (Other)
  Sender: TEVA
  Company Number: JP-TEVA-VS-3239833

PATIENT
  Age: 25 Year
  Sex: Male

DRUGS (5)
  1. PREDNISOLONE [Suspect]
     Active Substance: PREDNISOLONE
     Indication: Optic neuritis
     Route: 048
  2. PREDNISOLONE [Suspect]
     Active Substance: PREDNISOLONE
     Indication: Optic neuritis
     Route: 048
  3. CYCLOSPORINE [Suspect]
     Active Substance: CYCLOSPORINE
     Indication: Optic neuritis
     Route: 065
  4. METHYLPREDNISOLONE [Suspect]
     Active Substance: METHYLPREDNISOLONE
     Indication: Optic neuritis
     Route: 065
  5. AZATHIOPRINE [Suspect]
     Active Substance: AZATHIOPRINE
     Indication: Optic neuritis
     Route: 065

REACTIONS (9)
  - Malaise [Unknown]
  - Insomnia [Recovering/Resolving]
  - Optic neuritis [Unknown]
  - Herpes zoster [Unknown]
  - Intraocular pressure increased [Unknown]
  - Alopecia [Unknown]
  - Weight increased [Recovering/Resolving]
  - Disease recurrence [Unknown]
  - Cushingoid [Recovering/Resolving]
